FAERS Safety Report 5763815-3 (Version None)
Quarter: 2008Q2

REPORT INFORMATION
  Report Type: 
  Country: None (occurrence: None)
  Receive Date: 20080606
  Receipt Date: 20080606
  Transmission Date: 20081010
  Serious: Yes (Death)
  Sender: FDA-Public Use
  Company Number: None

PATIENT
  Age: 72 Year
  Sex: Female

DRUGS (2)
  1. ENBREL [Suspect]
     Indication: RHEUMATOID ARTHRITIS
     Dosage: 20 MG X2/BRAND
  2. METHOTREXATE [Concomitant]

REACTIONS (6)
  - ADENOCARCINOMA [None]
  - BLADDER ADENOCARCINOMA STAGE UNSPECIFIED [None]
  - LUNG ADENOCARCINOMA [None]
  - MESOTHELIOMA [None]
  - PLEURAL EFFUSION [None]
  - TONGUE NEOPLASM MALIGNANT STAGE UNSPECIFIED [None]
